FAERS Safety Report 9852804 (Version 1)
Quarter: 2014Q1

REPORT INFORMATION
  Report Type: Spontaneous
  Country: US (occurrence: None)
  Receive Date: 20140128
  Receipt Date: 20140128
  Transmission Date: 20141002
  Serious: Yes (Hospitalization)
  Sender: FDA-Public Use
  Company Number: None

PATIENT
  Age: 41 Year
  Sex: Male

DRUGS (1)
  1. INSULIN [Suspect]
     Indication: DIABETES MELLITUS
     Dosage: 9 UNITS SLIDING SCALE SQ
     Dates: start: 20140104, end: 20140107

REACTIONS (8)
  - Grand mal convulsion [None]
  - Fall [None]
  - Head injury [None]
  - Postictal state [None]
  - Confusional state [None]
  - Blood sodium decreased [None]
  - Dizziness [None]
  - Hypoglycaemia [None]
